FAERS Safety Report 22012280 (Version 1)
Quarter: 2023Q1

REPORT INFORMATION
  Report Type: Report from Study
  Country: US (occurrence: US)
  Receive Date: 20230220
  Receipt Date: 20230220
  Transmission Date: 20230418
  Serious: No
  Sender: FDA-Public Use
  Company Number: US-AURINIA PHARMACEUTICALS INC.-AUR-002287

PATIENT
  Sex: Female

DRUGS (1)
  1. LUPKYNIS [Suspect]
     Active Substance: VOCLOSPORIN
     Indication: Lupus nephritis
     Dosage: UNK (15.8 MG IN THE MORNING AND 7.9 MG IN THE EVENING(
     Route: 048

REACTIONS (6)
  - Nausea [Unknown]
  - Retching [Not Recovered/Not Resolved]
  - Dizziness [Unknown]
  - Hypertension [Unknown]
  - Abdominal pain [Unknown]
  - Diarrhoea [Unknown]
